FAERS Safety Report 20178330 (Version 6)
Quarter: 2023Q4

REPORT INFORMATION
  Report Type: Report from Study
  Country: CA (occurrence: CA)
  Receive Date: 20211213
  Receipt Date: 20231025
  Transmission Date: 20240110
  Serious: Yes (Hospitalization, Other)
  Sender: FDA-Public Use
  Company Number: CA-JNJFOC-20211204470

PATIENT
  Age: 35 Year
  Sex: Female
  Weight: 57.1 kg

DRUGS (2)
  1. REMICADE [Suspect]
     Active Substance: INFLIXIMAB
     Indication: Crohn^s disease
     Dosage: START: 11-AUG-2023
     Route: 042
     Dates: start: 20201216
  2. REMICADE [Suspect]
     Active Substance: INFLIXIMAB
     Route: 042

REACTIONS (8)
  - Postoperative wound infection [Not Recovered/Not Resolved]
  - Malignant polyp [Unknown]
  - Haematochezia [Recovered/Resolved]
  - Cyst [Recovering/Resolving]
  - Colorectal cancer [Unknown]
  - Oral herpes [Recovered/Resolved]
  - Sinusitis [Recovered/Resolved]
  - Vaginal discharge [Not Recovered/Not Resolved]

NARRATIVE: CASE EVENT DATE: 20211128
